FAERS Safety Report 6652492-5 (Version None)
Quarter: 2010Q1

REPORT INFORMATION
  Report Type: 
  Country: None (occurrence: None)
  Receive Date: 20100323
  Receipt Date: 20100310
  Transmission Date: 20100710
  Serious: Yes (Other)
  Sender: FDA-Public Use
  Company Number: 2010AP000486

PATIENT
  Age: 69 Year
  Sex: Female

DRUGS (7)
  1. PRAVASTATIN SODIUM [Suspect]
     Indication: ATRIAL FIBRILLATION
     Dosage: 40 MG;PO;QD
     Route: 048
     Dates: start: 20090301, end: 20090721
  2. PRAVASTATIN SODIUM [Suspect]
     Indication: BLOOD CHOLESTEROL INCREASED
     Dosage: 40 MG;PO;QD
     Route: 048
     Dates: start: 20090301, end: 20090721
  3. PRAVASTATIN SODIUM [Suspect]
     Indication: PROPHYLAXIS
     Dosage: 40 MG;PO;QD
     Route: 048
     Dates: start: 20090301, end: 20090721
  4. ATENOLOL [Concomitant]
  5. BISPPROLOL FUMARATE (BISOPROLOL FUMARATE) [Concomitant]
  6. RAMIPRIL [Concomitant]
  7. WARFARIN SODIUM [Concomitant]

REACTIONS (3)
  - MUSCULAR WEAKNESS [None]
  - PAIN [None]
  - WEIGHT DECREASED [None]
